FAERS Safety Report 23662811 (Version 1)
Quarter: 2024Q1

REPORT INFORMATION
  Report Type: Spontaneous
  Country: IN (occurrence: IN)
  Receive Date: 20240322
  Receipt Date: 20240322
  Transmission Date: 20240409
  Serious: Yes (Other)
  Sender: FDA-Public Use
  Company Number: IN-SUN PHARMACEUTICAL INDUSTRIES LTD-2024R1-437190

PATIENT
  Age: 20 Year
  Sex: Male

DRUGS (2)
  1. METHOTREXATE [Suspect]
     Active Substance: METHOTREXATE
     Indication: Aortitis
     Route: 065
  2. PREDNISOLONE [Suspect]
     Active Substance: PREDNISOLONE
     Indication: Aortitis
     Route: 065

REACTIONS (5)
  - Blood creatinine increased [Unknown]
  - Secondary amyloidosis [Unknown]
  - Gastroenteritis [Unknown]
  - Oliguria [Unknown]
  - Proteinuria [Unknown]

NARRATIVE: CASE EVENT DATE: 20220101
